FAERS Safety Report 18688417 (Version 1)
Quarter: 2020Q4

REPORT INFORMATION
  Report Type: Other
  Country: GB (occurrence: GB)
  Receive Date: 20201231
  Receipt Date: 20201231
  Transmission Date: 20210114
  Serious: Yes (Life-Threatening, Hospitalization, Other)
  Sender: FDA-Public Use
  Company Number: GB-NUVO PHARMACEUTICALS INC-2103698

PATIENT
  Age: 57 Year
  Sex: Female

DRUGS (2)
  1. MIRTAZAPINE. [Concomitant]
     Active Substance: MIRTAZAPINE
     Route: 065
  2. OXYCODONE HYDROCHLORIDE. [Suspect]
     Active Substance: OXYCODONE HYDROCHLORIDE
     Indication: PRODUCT USED FOR UNKNOWN INDICATION
     Route: 065

REACTIONS (7)
  - Renal impairment [Unknown]
  - Unresponsive to stimuli [Unknown]
  - Leukoencephalopathy [Unknown]
  - Hepatic function abnormal [Unknown]
  - Hypoxia [Unknown]
  - Overdose [Unknown]
  - Coma [Recovered/Resolved]
